FAERS Safety Report 23641174 (Version 3)
Quarter: 2024Q4

REPORT INFORMATION
  Report Type: Spontaneous
  Country: US (occurrence: US)
  Receive Date: 20240318
  Receipt Date: 20241219
  Transmission Date: 20250115
  Serious: Yes (Hospitalization)
  Sender: PACIRA
  Company Number: US-PACIRA-201900203

PATIENT

DRUGS (1)
  1. EXPAREL [Suspect]
     Active Substance: BUPIVACAINE
     Indication: Nerve block
     Dosage: 266 MG (20 ML DILUTED WITH 0.9% NORMAL SALINE TO TOTAL VOLUME OF 30 ML)
     Route: 050

REACTIONS (2)
  - Hospitalisation [Unknown]
  - Off label use [Unknown]
